FAERS Safety Report 20362688 (Version 1)
Quarter: 2022Q1

REPORT INFORMATION
  Report Type: Spontaneous
  Country: DE (occurrence: DE)
  Receive Date: 20220121
  Receipt Date: 20220121
  Transmission Date: 20220423
  Serious: Yes (Hospitalization, Other)
  Sender: FDA-Public Use
  Company Number: DE-ASTELLAS-2022US000043

PATIENT
  Sex: Male

DRUGS (3)
  1. RITUXIMAB [Interacting]
     Active Substance: RITUXIMAB
     Dosage: UNK
  2. PROGRAF [Interacting]
     Active Substance: TACROLIMUS
     Indication: Renal transplant
     Dosage: UNK
  3. CELLCEPT [Interacting]
     Active Substance: MYCOPHENOLATE MOFETIL
     Dosage: UNK

REACTIONS (2)
  - Drug interaction [Unknown]
  - Seizure [Unknown]
